FAERS Safety Report 23460542 (Version 1)
Quarter: 2024Q1

REPORT INFORMATION
  Report Type: Spontaneous
  Country: US (occurrence: None)
  Receive Date: 20240131
  Receipt Date: 20240131
  Transmission Date: 20240410
  Serious: Yes (Other)
  Sender: FDA-Public Use
  Company Number: 2024A018380

PATIENT
  Sex: Male

DRUGS (1)
  1. SYMBICORT [Suspect]
     Active Substance: BUDESONIDE\FORMOTEROL FUMARATE DIHYDRATE
     Dosage: UNKNOWN UNKNOWN
     Route: 055

REACTIONS (11)
  - Overdose [Unknown]
  - Visual impairment [Unknown]
  - Loss of consciousness [Unknown]
  - Anxiety [Unknown]
  - Hypoaesthesia [Unknown]
  - Euphoric mood [Unknown]
  - Dyspnoea [Unknown]
  - Chest pain [Unknown]
  - Headache [Unknown]
  - Panic attack [Unknown]
  - Product use issue [Unknown]
